FAERS Safety Report 26049531 (Version 1)
Quarter: 2025Q4

REPORT INFORMATION
  Report Type: Spontaneous
  Country: US (occurrence: US)
  Receive Date: 20251115
  Receipt Date: 20251115
  Transmission Date: 20260118
  Serious: No
  Sender: SANOFI AVENTIS
  Company Number: US-SANOFI-02716327

PATIENT
  Sex: Male

DRUGS (2)
  1. LANTUS SOLOSTAR [Suspect]
     Active Substance: INSULIN GLARGINE
     Indication: Type 2 diabetes mellitus
     Dosage: 40 IU, QD
     Dates: start: 2015, end: 2025
  2. LANTUS SOLOSTAR [Suspect]
     Active Substance: INSULIN GLARGINE
     Dosage: 38 IU, QD
     Dates: start: 202509

REACTIONS (1)
  - Product storage error [Unknown]
